FAERS Safety Report 4570089-8 (Version None)
Quarter: 2005Q1

REPORT INFORMATION
  Report Type: 
  Country: None (occurrence: None)
  Receive Date: 20050125
  Receipt Date: 20050125
  Transmission Date: 20050727
  Serious: Yes (Hospitalization)
  Sender: FDA-Public Use
  Company Number: None

PATIENT
  Sex: Male
  Weight: 73.2559 kg

DRUGS (11)
  1. CARBOPLATIN [Suspect]
     Indication: NON-SMALL CELL LUNG CANCER
     Dosage: AUC = 2 IV QWK X 7
     Route: 042
     Dates: start: 20041129, end: 20041220
  2. DOCITAXOL 80MG/2ML AVENTIS [Suspect]
     Indication: NON-SMALL CELL LUNG CANCER
     Dosage: 20MG/M2 IV Q WK X 7
     Route: 042
     Dates: start: 20041129, end: 20041220
  3. RADIATION [Concomitant]
  4. TOPROL-XL [Concomitant]
  5. ASPIRIN [Concomitant]
  6. DECADRON [Concomitant]
  7. COMPAZINE [Concomitant]
  8. ZOFRAN [Concomitant]
  9. BMX [Concomitant]
  10. TIGAN [Concomitant]
  11. DURAGESIC [Concomitant]

REACTIONS (9)
  - ANOREXIA [None]
  - CARDIOVASCULAR DISORDER [None]
  - DEHYDRATION [None]
  - FATIGUE [None]
  - ORTHOSTATIC HYPOTENSION [None]
  - PERFORMANCE STATUS DECREASED [None]
  - RADIATION DYSPHAGIA [None]
  - STOMATITIS [None]
  - WEIGHT DECREASED [None]
